FAERS Safety Report 4451339-5 (Version None)
Quarter: 2004Q3

REPORT INFORMATION
  Report Type: 
  Country: None (occurrence: None)
  Receive Date: 20040916
  Receipt Date: 20040907
  Transmission Date: 20050211
  Serious: Yes (Hospitalization)
  Sender: FDA-Public Use
  Company Number: SE-GLAXOSMITHKLINE-B0345167A

PATIENT
  Age: 17 Year
  Sex: Male

DRUGS (1)
  1. ZYBAN [Suspect]
     Dosage: 50TAB PER DAY
     Route: 048

REACTIONS (9)
  - BLOOD CREATININE INCREASED [None]
  - CONVULSION [None]
  - GAIT DISTURBANCE [None]
  - HALLUCINATION [None]
  - MEMORY IMPAIRMENT [None]
  - MYDRIASIS [None]
  - MYOGLOBIN BLOOD INCREASED [None]
  - OVERDOSE [None]
  - TACHYCARDIA [None]
